FAERS Safety Report 5781210-8 (Version None)
Quarter: 2008Q2

REPORT INFORMATION
  Report Type: 
  Country: None (occurrence: None)
  Receive Date: 20080606
  Receipt Date: 20080528
  Transmission Date: 20081010
  Serious: Yes (Death, Other)
  Sender: FDA-Public Use
  Company Number: THYM-1000682

PATIENT
  Age: 54 Year
  Sex: Male
  Weight: 74.3 kg

DRUGS (13)
  1. THYMOGLOBULIN [Suspect]
     Indication: MYELOID LEUKAEMIA
     Dosage: 1 MG/M2 QD,; 2.5 MG/M2, QD
     Dates: start: 20080329, end: 20080329
  2. THYMOGLOBULIN [Suspect]
     Indication: MYELOID LEUKAEMIA
     Dosage: 1 MG/M2 QD,; 2.5 MG/M2, QD
     Dates: start: 20080330, end: 20080331
  3. CLOFARABINE (CLOFARABINE) [Suspect]
     Indication: MYELOID LEUKAEMIA
     Dosage: 40 MG/M2, QDX5,
     Dates: start: 20080327, end: 20080331
  4. CYTARABINE [Suspect]
     Indication: MYELOID LEUKAEMIA
     Dosage: 1 G/M2, QDX5,
     Dates: start: 20080327, end: 20080331
  5. CEFEPIME [Concomitant]
  6. DEXAMETHASONE [Concomitant]
  7. NEXIUM (ESOMEPRAZOLE SODIUM) [Concomitant]
  8. FAMOTIDINE [Concomitant]
  9. SINGULAIR [Concomitant]
  10. PRED FORTE [Concomitant]
  11. VALTREX [Concomitant]
  12. ANIDULAFUNGIN [Concomitant]
  13. GENTAMICIN [Concomitant]

REACTIONS (13)
  - ALANINE AMINOTRANSFERASE INCREASED [None]
  - ASPARTATE AMINOTRANSFERASE INCREASED [None]
  - BLOOD ALKALINE PHOSPHATASE INCREASED [None]
  - BLOOD CULTURE POSITIVE [None]
  - BLOOD SODIUM INCREASED [None]
  - HYPERBILIRUBINAEMIA [None]
  - MUCOSAL INFLAMMATION [None]
  - MULTI-ORGAN FAILURE [None]
  - RENAL FAILURE ACUTE [None]
  - RESPIRATORY DISTRESS [None]
  - STAPHYLOCOCCAL INFECTION [None]
  - TOXIC EPIDERMAL NECROLYSIS [None]
  - UNRELATED DONOR BONE MARROW TRANSPLANTATION THERAPY [None]
